FAERS Safety Report 4444736-5 (Version None)
Quarter: 2004Q3

REPORT INFORMATION
  Report Type: 
  Country: None (occurrence: None)
  Receive Date: 20040903
  Receipt Date: 20040823
  Transmission Date: 20050211
  Serious: No
  Sender: FDA-Public Use
  Company Number: 2004GB02050

PATIENT
  Age: 7 Year
  Sex: Female

DRUGS (1)
  1. LIGNOCAINE HYDROCHLORIDE AND ADRENALINE [Suspect]
     Indication: LOCAL ANAESTHESIA
     Dosage: 4.4 ML ONCE UNK
     Dates: start: 20040622, end: 20040622

REACTIONS (5)
  - ERYTHEMA [None]
  - FEELING HOT [None]
  - MUSCULOSKELETAL STIFFNESS [None]
  - SWELLING FACE [None]
  - VOMITING [None]
